FAERS Safety Report 5720511-6 (Version None)
Quarter: 2008Q2

REPORT INFORMATION
  Report Type: 
  Country: None (occurrence: None)
  Receive Date: 20080428
  Receipt Date: 20080416
  Transmission Date: 20081010
  Serious: Yes (Death)
  Sender: FDA-Public Use
  Company Number: DE-GENENTECH-259847

PATIENT
  Sex: Female
  Weight: 65 kg

DRUGS (2)
  1. RITUXIMAB [Suspect]
     Indication: CHRONIC LYMPHOCYTIC LEUKAEMIA
     Dosage: 615 MG, Q4W
     Route: 042
     Dates: start: 20070105, end: 20070201
  2. BENDAMUSTINE [Suspect]
     Indication: CHRONIC LYMPHOCYTIC LEUKAEMIA
     Dosage: 115 MG, UNK
     Route: 042
     Dates: start: 20070105, end: 20070201

REACTIONS (6)
  - APLASIA [None]
  - CARDIOVASCULAR INSUFFICIENCY [None]
  - DEATH [None]
  - PNEUMONIA [None]
  - RESPIRATORY FAILURE [None]
  - SEPSIS [None]
